FAERS Safety Report 8175142-8 (Version None)
Quarter: 2012Q1

REPORT INFORMATION
  Report Type: 
  Country: None (occurrence: None)
  Receive Date: 20120229
  Receipt Date: 20120224
  Transmission Date: 20120608
  Serious: Yes (Hospitalization, Other)
  Sender: FDA-Public Use
  Company Number: PHHY2012TW002813

PATIENT
  Sex: Female
  Weight: 52 kg

DRUGS (1)
  1. CERTICAN [Suspect]
     Indication: IMMUNOSUPPRESSION
     Dosage: 0.25 MG, UNK
     Route: 048
     Dates: start: 20110819, end: 20111228

REACTIONS (4)
  - ANURIA [None]
  - LYMPHATIC OBSTRUCTION [None]
  - RENAL IMPAIRMENT [None]
  - LYMPHOEDEMA [None]
